FAERS Safety Report 23366247 (Version 2)
Quarter: 2024Q1

REPORT INFORMATION
  Report Type: Spontaneous
  Country: CN (occurrence: CN)
  Receive Date: 20240104
  Receipt Date: 20240108
  Transmission Date: 20240410
  Serious: Yes (Life-Threatening, Other)
  Sender: FDA-Public Use
  Company Number: CN-PFIZER INC-PV202300208763

PATIENT
  Age: 30 Year
  Sex: Female

DRUGS (3)
  1. MEDROL [Suspect]
     Active Substance: METHYLPREDNISOLONE
     Indication: Systemic lupus erythematosus
     Dosage: 40 MG, 1X/DAY (56 MG/D)
     Dates: start: 2019
  2. MEDROL [Suspect]
     Active Substance: METHYLPREDNISOLONE
     Indication: Neuropsychiatric lupus
     Dosage: 16 MG, 1X/DAY  (56 MG/D)
     Dates: start: 2019
  3. MEDROL [Suspect]
     Active Substance: METHYLPREDNISOLONE
     Indication: Haemophagocytic lymphohistiocytosis

REACTIONS (1)
  - Drug ineffective [Recovered/Resolved]

NARRATIVE: CASE EVENT DATE: 20190101
